FAERS Safety Report 21206741 (Version 1)
Quarter: 2022Q3

REPORT INFORMATION
  Report Type: Report from Study
  Country: TR (occurrence: TR)
  Receive Date: 20220812
  Receipt Date: 20220812
  Transmission Date: 20221026
  Serious: Yes (Hospitalization)
  Sender: FDA-Public Use
  Company Number: TR-ARGENX-2022-ARGX-TR001031

PATIENT
  Age: 49 Year
  Sex: Female
  Weight: 74.5 kg

DRUGS (9)
  1. EFGARTIGIMOD ALFA [Suspect]
     Active Substance: EFGARTIGIMOD ALFA
     Indication: Immune thrombocytopenia
     Dosage: UNK
  2. HYALURONIDASE (HUMAN RECOMBINANT) [Suspect]
     Active Substance: HYALURONIDASE (HUMAN RECOMBINANT)
     Indication: Immune thrombocytopenia
     Dosage: UNK
  3. Calcimax [Concomitant]
     Indication: Prophylaxis
     Dosage: 1X1 (100 MG) P.O.
     Route: 048
     Dates: start: 20211117
  4. FEROMATHIN [Concomitant]
     Indication: Anaemia
     Dosage: 2X1 (100 MG) P.O.
     Route: 048
     Dates: start: 20220428
  5. Panto [Concomitant]
     Indication: Prophylaxis
     Dosage: 1X1 40 MG PO
     Route: 048
     Dates: start: 20211216
  6. NORVASC [Concomitant]
     Active Substance: AMLODIPINE BESYLATE
     Indication: Hypertension
     Dosage: 1X1 5 MG PO
     Route: 048
     Dates: start: 20211222
  7. PREDNISONE [Concomitant]
     Active Substance: PREDNISONE
     Indication: Immune thrombocytopenia
     Dosage: 1X1 50 MG PO
     Dates: start: 20210515
  8. PREDNISONE [Concomitant]
     Active Substance: PREDNISONE
     Dosage: 1X1 40 MG PO
     Dates: start: 20211115
  9. ELTROMBOPAG OLAMINE [Concomitant]
     Active Substance: ELTROMBOPAG OLAMINE
     Indication: Immune thrombocytopenia
     Dosage: UNK
     Route: 048
     Dates: start: 20211115

REACTIONS (1)
  - Fatigue [Recovered/Resolved]

NARRATIVE: CASE EVENT DATE: 20220622
